FAERS Safety Report 6239434-1 (Version None)
Quarter: 2009Q2

REPORT INFORMATION
  Report Type: 
  Country: None (occurrence: None)
  Receive Date: 20090622
  Receipt Date: 20090612
  Transmission Date: 20091009
  Serious: Yes (Hospitalization)
  Sender: FDA-Public Use
  Company Number: NL-ABBOTT-09P-114-0579449-00

PATIENT
  Sex: Female
  Weight: 70 kg

DRUGS (10)
  1. HUMIRA [Suspect]
     Indication: RHEUMATOID ARTHRITIS
     Route: 058
     Dates: start: 20081010
  2. METHOTREXATE [Concomitant]
     Indication: RHEUMATOID ARTHRITIS
     Route: 048
  3. BONIVA R CALI/D3 [Concomitant]
     Indication: OSTEOARTHRITIS
     Route: 048
  4. BONIVA R CALI/D3 [Concomitant]
     Indication: PROPHYLAXIS
  5. PREDNISON [Concomitant]
     Indication: RHEUMATOID ARTHRITIS
     Route: 048
  6. ASCAL [Concomitant]
     Indication: DRUG USE FOR UNKNOWN INDICATION
  7. PANTOZOL [Concomitant]
     Indication: DRUG USE FOR UNKNOWN INDICATION
  8. CRESTOR [Concomitant]
     Indication: HYPERCHOLESTEROLAEMIA
  9. NIFEDIPINE [Concomitant]
     Indication: DRUG USE FOR UNKNOWN INDICATION
  10. LISITROPRIL [Concomitant]
     Indication: HYPERTENSION

REACTIONS (1)
  - ANGINA PECTORIS [None]
